FAERS Safety Report 12090695 (Version 1)
Quarter: 2016Q1

REPORT INFORMATION
  Report Type: Spontaneous
  Country: US (occurrence: US)
  Receive Date: 20160218
  Receipt Date: 20160218
  Transmission Date: 20160526
  Serious: No
  Sender: FDA-Public Use
  Company Number: US-PERRIGO-15US006488

PATIENT
  Age: 24 Year
  Sex: Male
  Weight: 106.58 kg

DRUGS (1)
  1. CETIRIZINE HYDROCHLORIDE. [Suspect]
     Active Substance: CETIRIZINE HYDROCHLORIDE
     Indication: NASOPHARYNGITIS
     Dosage: 10 MG, QD
     Route: 048
     Dates: start: 20150612, end: 20150616

REACTIONS (2)
  - Off label use [None]
  - Somnolence [Recovered/Resolved]

NARRATIVE: CASE EVENT DATE: 20150612
